FAERS Safety Report 16729595 (Version 3)
Quarter: 2019Q3

REPORT INFORMATION
  Report Type: Spontaneous
  Country: US (occurrence: US)
  Receive Date: 20190822
  Receipt Date: 20190930
  Transmission Date: 20191005
  Serious: Yes (Hospitalization)
  Sender: FDA-Public Use
  Company Number: US-KARYOPHARM THERAPEUTICS, INC.-2019KPT000362

PATIENT

DRUGS (1)
  1. XPOVIO [Suspect]
     Active Substance: SELINEXOR
     Indication: PLASMA CELL MYELOMA
     Dosage: 80 MG, 2X/WEEK
     Route: 048
     Dates: start: 20190718

REACTIONS (10)
  - Fall [Unknown]
  - Fatigue [Unknown]
  - Nausea [Unknown]
  - Confusional state [Unknown]
  - Cognitive disorder [Unknown]
  - Decreased appetite [Unknown]
  - Accidental underdose [Unknown]
  - Dehydration [Unknown]
  - Neurological symptom [Unknown]
  - Weight decreased [Unknown]

NARRATIVE: CASE EVENT DATE: 20190725
